FAERS Safety Report 11606045 (Version 1)
Quarter: 2015Q4

REPORT INFORMATION
  Report Type: Report from Study
  Country: CA (occurrence: CA)
  Receive Date: 20151007
  Receipt Date: 20151007
  Transmission Date: 20160304
  Serious: Yes (Hospitalization, Other)
  Sender: FDA-Public Use
  Company Number: US-ASTRAZENECA-2015SE61814

PATIENT
  Age: 18 Month

DRUGS (4)
  1. PALIVIZUMAB [Suspect]
     Active Substance: PALIVIZUMAB
     Indication: ANTIVIRAL PROPHYLAXIS
     Dosage: SINGLE ADMINISTRATION, AT A DOSE OF 15 MG/KG OF BODY WEIGHT
     Route: 030
  2. PALIVIZUMAB [Suspect]
     Active Substance: PALIVIZUMAB
     Indication: ANTIVIRAL PROPHYLAXIS
     Dosage: SINGLE ADMINISTRATION, AT A DOSE OF 15 MG/KG OF BODY WEIGHT
     Route: 030
  3. PALIVIZUMAB [Suspect]
     Active Substance: PALIVIZUMAB
     Indication: ANTIVIRAL PROPHYLAXIS
     Dosage: SINGLE ADMINISTRATION, AT A DOSE OF 15 MG/KG OF BODY WEIGHT
     Route: 030
  4. PALIVIZUMAB [Suspect]
     Active Substance: PALIVIZUMAB
     Indication: ANTIVIRAL PROPHYLAXIS
     Dosage: SINGLE ADMINISTRATION, AT A DOSE OF 15 MG/KG OF BODY WEIGHT
     Route: 030

REACTIONS (4)
  - Erythema [Unknown]
  - Generalised erythema [Unknown]
  - Hypersensitivity [Unknown]
  - Bronchospasm [Unknown]
